FAERS Safety Report 9239451 (Version 1)
Quarter: 2013Q2

REPORT INFORMATION
  Report Type: Spontaneous
  Country: BR (occurrence: BR)
  Receive Date: 20130418
  Receipt Date: 20130418
  Transmission Date: 20140414
  Serious: Yes (Other)
  Sender: FDA-Public Use
  Company Number: BR-ASTRAZENECA-2013SE25174

PATIENT
  Age: 69 Year
  Sex: Female
  Weight: 70 kg

DRUGS (2)
  1. CRESTOR [Suspect]
     Dosage: DAILY
     Route: 048
     Dates: start: 2009, end: 201303
  2. CRESTOR [Suspect]
     Route: 048

REACTIONS (2)
  - Coronary artery occlusion [Not Recovered/Not Resolved]
  - Fatigue [Not Recovered/Not Resolved]
